FAERS Safety Report 9780944 (Version 1)
Quarter: 2013Q4

REPORT INFORMATION
  Report Type: Spontaneous
  Country: TR (occurrence: None)
  Receive Date: 20131220
  Receipt Date: 20131220
  Transmission Date: 20140711
  Serious: Yes (Hospitalization)
  Sender: FDA-Public Use
  Company Number: SYM-2013-14063

PATIENT
  Age: 43 Year
  Sex: Female

DRUGS (3)
  1. BUPROPION [Suspect]
     Indication: DEPRESSION
  2. BUPROPION [Suspect]
     Indication: OBSESSIVE-COMPULSIVE DISORDER
  3. FLUOXETINE [Concomitant]

REACTIONS (5)
  - Libido increased [None]
  - Malaise [None]
  - Anhedonia [None]
  - Asthenia [None]
  - Decreased interest [None]
